FAERS Safety Report 18598836 (Version 1)
Quarter: 2020Q4

REPORT INFORMATION
  Report Type: Spontaneous
  Country: US (occurrence: US)
  Receive Date: 20201210
  Receipt Date: 20201210
  Transmission Date: 20210114
  Serious: Yes (Other)
  Sender: FDA-Public Use
  Company Number: US-TEVA-2020-US-1857589

PATIENT
  Age: 65 Year
  Sex: Male

DRUGS (1)
  1. NEFAZODONE [Suspect]
     Active Substance: NEFAZODONE
     Dosage: PRODUCT FOR 18 YEARS 200 MG TWICE A DAY
     Route: 065
     Dates: start: 2002

REACTIONS (7)
  - Anxiety [Not Recovered/Not Resolved]
  - Panic attack [Not Recovered/Not Resolved]
  - Photopsia [Not Recovered/Not Resolved]
  - Crying [Not Recovered/Not Resolved]
  - Withdrawal syndrome [Not Recovered/Not Resolved]
  - Agoraphobia [Not Recovered/Not Resolved]
  - Product availability issue [Unknown]
